FAERS Safety Report 11248127 (Version 2)
Quarter: 2015Q3

REPORT INFORMATION
  Report Type: Report from Study
  Country: DE (occurrence: DE)
  Receive Date: 20150708
  Receipt Date: 20150812
  Transmission Date: 20151125
  Serious: Yes (Hospitalization, Other)
  Sender: FDA-Public Use
  Company Number: DE-INCYTE CORPORATION-2015IN003159

PATIENT
  Age: 65 Year
  Sex: Male
  Weight: 73.5 kg

DRUGS (2)
  1. INCB018424 [Suspect]
     Active Substance: RUXOLITINIB
     Indication: MYELOFIBROSIS
     Dosage: 15 MG, 2 DF QD
     Route: 048
     Dates: start: 20140707, end: 20150311
  2. INCB018424 [Suspect]
     Active Substance: RUXOLITINIB
     Dosage: 1 DF 15 MG +1 DF 5 MG, QD
     Route: 048
     Dates: start: 20150312, end: 20150619

REACTIONS (4)
  - White blood cell count increased [Not Recovered/Not Resolved]
  - Pneumonia [Recovered/Resolved]
  - Acute myeloid leukaemia [Not Recovered/Not Resolved]
  - Blast cell count increased [Unknown]

NARRATIVE: CASE EVENT DATE: 20150618
